FAERS Safety Report 15337746 (Version 1)
Quarter: 2018Q3

REPORT INFORMATION
  Report Type: Spontaneous
  Country: GB (occurrence: GB)
  Receive Date: 20180831
  Receipt Date: 20180831
  Transmission Date: 20181010
  Serious: Yes (Death)
  Sender: FDA-Public Use
  Company Number: GB-ROCHE-2177834

PATIENT

DRUGS (2)
  1. RITUXIMAB. [Suspect]
     Active Substance: RITUXIMAB
     Indication: B-CELL PROLYMPHOCYTIC LEUKAEMIA
     Dosage: 375 MG/M2 WAS GIVEN 2?WEEKLY (CYCLE (C) 1?2) AND THEN 4?WEEKLY (C3?6), 6 CYCLES
     Route: 065
  2. IDELALISIB [Suspect]
     Active Substance: IDELALISIB
     Indication: B-CELL PROLYMPHOCYTIC LEUKAEMIA
     Dosage: 150 MG, BID, 6 CYCLES
     Route: 065

REACTIONS (1)
  - Pneumonitis [Fatal]
